FAERS Safety Report 7039667-0 (Version None)
Quarter: 2010Q4

REPORT INFORMATION
  Report Type: 
  Country: None (occurrence: None)
  Receive Date: 20101012
  Receipt Date: 20101005
  Transmission Date: 20110411
  Serious: Yes (Other)
  Sender: FDA-Public Use
  Company Number: B0678215A

PATIENT
  Sex: Female

DRUGS (1)
  1. TYVERB [Suspect]
     Route: 048

REACTIONS (2)
  - ACCIDENTAL OVERDOSE [None]
  - VENTRICULAR TACHYCARDIA [None]
